FAERS Safety Report 7199031-0 (Version None)
Quarter: 2010Q4

REPORT INFORMATION
  Report Type: 
  Country: None (occurrence: None)
  Receive Date: 20101228
  Receipt Date: 20101217
  Transmission Date: 20110411
  Serious: Yes (Hospitalization)
  Sender: FDA-Public Use
  Company Number: US-BIOGENIDEC-2010BI042826

PATIENT
  Age: 36 Year
  Sex: Male
  Weight: 82 kg

DRUGS (2)
  1. TYSABRI [Suspect]
     Indication: MULTIPLE SCLEROSIS
     Route: 042
     Dates: start: 20100201
  2. TYSABRI [Suspect]
     Route: 042
     Dates: start: 20070101, end: 20080101

REACTIONS (4)
  - GAIT DISTURBANCE [None]
  - INFLUENZA [None]
  - MONOPLEGIA [None]
  - UHTHOFF'S PHENOMENON [None]
